FAERS Safety Report 14280036 (Version 4)
Quarter: 2018Q4

REPORT INFORMATION
  Report Type: Spontaneous
  Country: US (occurrence: US)
  Receive Date: 20171212
  Receipt Date: 20181023
  Transmission Date: 20190204
  Serious: No
  Sender: FDA-Public Use
  Company Number: US-ACTELION-A-NJ2017-163760

PATIENT
  Age: 16 Year
  Sex: Female

DRUGS (8)
  1. TADALAFIL. [Suspect]
     Active Substance: TADALAFIL
     Indication: PRODUCT USED FOR UNKNOWN INDICATION
     Dosage: 40 MG, QD
     Route: 065
     Dates: start: 20181016
  2. VITAMIN D [Concomitant]
     Active Substance: CHOLECALCIFEROL
  3. VITAMIN C [Concomitant]
     Active Substance: ASCORBIC ACID
  4. OPSUMIT [Suspect]
     Active Substance: MACITENTAN
     Indication: PULMONARY ARTERIAL HYPERTENSION
     Dosage: 10 MG, QD
     Route: 048
     Dates: start: 20170623
  5. ADEMPAS [Concomitant]
     Active Substance: RIOCIGUAT
  6. FISH OIL [Concomitant]
     Active Substance: FISH OIL
  7. IBUPROFEN. [Concomitant]
     Active Substance: IBUPROFEN
  8. ZINC. [Concomitant]
     Active Substance: ZINC

REACTIONS (7)
  - Nausea [Recovered/Resolved]
  - Headache [Unknown]
  - Decreased appetite [Recovered/Resolved]
  - Memory impairment [Unknown]
  - Diarrhoea [Recovered/Resolved]
  - Product dose omission [Unknown]
  - Gastrooesophageal reflux disease [Unknown]

NARRATIVE: CASE EVENT DATE: 20171128
